FAERS Safety Report 8435390-6 (Version None)
Quarter: 2012Q2

REPORT INFORMATION
  Report Type: 
  Country: None (occurrence: None)
  Receive Date: 20120614
  Receipt Date: 20120611
  Transmission Date: 20120825
  Serious: Yes (Hospitalization)
  Sender: FDA-Public Use
  Company Number: PHHY2012TW047919

PATIENT
  Sex: Female
  Weight: 50 kg

DRUGS (1)
  1. MIACALCIN [Suspect]
     Indication: OSTEOPOROSIS
     Dosage: 50 IU, DAILY
     Route: 030
     Dates: start: 20120604, end: 20120604

REACTIONS (8)
  - DIARRHOEA [None]
  - NAUSEA [None]
  - DIZZINESS [None]
  - COLD SWEAT [None]
  - VOMITING [None]
  - CHILLS [None]
  - TREMOR [None]
  - HYPERTENSION [None]
